FAERS Safety Report 9149472 (Version 1)
Quarter: 2013Q1

REPORT INFORMATION
  Report Type: Report from Study
  Country: US (occurrence: US)
  Receive Date: 20130308
  Receipt Date: 20130308
  Transmission Date: 20140127
  Serious: Yes (Life-Threatening, Hospitalization)
  Sender: FDA-Public Use
  Company Number: PHHO2013US003387

PATIENT
  Sex: Male
  Weight: 90.7 kg

DRUGS (7)
  1. AFINITOR [Suspect]
     Indication: METASTATIC MALIGNANT MELANOMA
     Dosage: 5 MG, TIW
     Route: 048
     Dates: start: 20121127, end: 20130109
  2. CARBOPLATIN [Suspect]
     Indication: METASTATIC MALIGNANT MELANOMA
     Dosage: AUC 5 GIVEN ON DAY-1
     Route: 042
     Dates: start: 20121127, end: 20121226
  3. CARBOPLATIN [Suspect]
     Dosage: AUC 5 GIVEN ON DAY-1
     Route: 042
  4. BEVACIZUMAB [Suspect]
     Indication: METASTATIC MALIGNANT MELANOMA
     Dosage: 10 MG/KG, (DAYS 1 AND 15)
     Route: 042
     Dates: start: 20121111, end: 20130111
  5. BEVACIZUMAB [Suspect]
     Dosage: 10 MG/KG, (DAYS 1 AND 15)
     Route: 042
  6. TAXOL [Suspect]
     Indication: METASTATIC MALIGNANT MELANOMA
     Dosage: 80 MG/M2, (DAY 1, 8 AND 15)
     Route: 042
     Dates: start: 20121127, end: 20130111
  7. TAXOL [Suspect]
     Dosage: 80 MG/M2, (DAY 1, 8 AND 15)
     Route: 042

REACTIONS (2)
  - Renal failure acute [Not Recovered/Not Resolved]
  - Sepsis [Not Recovered/Not Resolved]
